FAERS Safety Report 6542429-1 (Version None)
Quarter: 2010Q1

REPORT INFORMATION
  Report Type: 
  Country: None (occurrence: None)
  Receive Date: 20100119
  Receipt Date: 20100107
  Transmission Date: 20100710
  Serious: Yes (Hospitalization)
  Sender: FDA-Public Use
  Company Number: US-GILEAD-2010-0026400

PATIENT
  Sex: Male

DRUGS (2)
  1. TRUVADA [Suspect]
     Indication: HIV INFECTION
     Route: 002
     Dates: start: 20090807
  2. RALTEGRAVIR [Suspect]
     Indication: HIV INFECTION
     Dates: start: 20090807

REACTIONS (6)
  - BLOOD GLUCOSE INCREASED [None]
  - COUGH [None]
  - EAR PAIN [None]
  - HOSPITALISATION [None]
  - OROPHARYNGEAL PAIN [None]
  - PNEUMONIA BACTERIAL [None]
